FAERS Safety Report 6996834-X (Version None)
Quarter: 2010Q3

REPORT INFORMATION
  Report Type: 
  Country: None (occurrence: None)
  Receive Date: 20100918
  Receipt Date: 20090709
  Transmission Date: 20110219
  Serious: Yes (Other)
  Sender: FDA-Public Use
  Company Number: US-WYE-H10081609

PATIENT
  Sex: Female

DRUGS (4)
  1. PREMPRO [Suspect]
     Indication: HORMONE REPLACEMENT THERAPY
  2. CYCRIN [Suspect]
     Indication: HORMONE REPLACEMENT THERAPY
  3. PROVERA [Suspect]
     Indication: HORMONE REPLACEMENT THERAPY
  4. PREMARIN [Suspect]
     Indication: HORMONE REPLACEMENT THERAPY

REACTIONS (3)
  - AMNESIA [None]
  - CEREBROVASCULAR ACCIDENT [None]
  - THROMBOSIS [None]
